FAERS Safety Report 16584614 (Version 13)
Quarter: 2024Q4

REPORT INFORMATION
  Report Type: Report from Study
  Country: IT (occurrence: IT)
  Receive Date: 20190717
  Receipt Date: 20241118
  Transmission Date: 20250115
  Serious: Yes (Hospitalization, Other)
  Sender: AEGERION
  Company Number: IT-AEGERION PHARMACEUTICAL, INC-AEGR004386

PATIENT

DRUGS (35)
  1. MYALEPT [Suspect]
     Active Substance: METRELEPTIN
     Indication: Acquired generalised lipodystrophy
     Dosage: 3.5  MG, QD
     Route: 058
     Dates: start: 20150713, end: 20190526
  2. MYALEPT [Suspect]
     Active Substance: METRELEPTIN
     Dosage: 3.0 MG, QD
     Route: 058
     Dates: start: 20190527, end: 20200119
  3. MYALEPT [Suspect]
     Active Substance: METRELEPTIN
     Dosage: 3.5 MG, BID
     Route: 058
     Dates: start: 20200120
  4. MYALEPT [Suspect]
     Active Substance: METRELEPTIN
     Dosage: 2.5 MILLIGRAM, BID
     Route: 058
     Dates: start: 20201016
  5. MYALEPT [Suspect]
     Active Substance: METRELEPTIN
     Dosage: 3.5 MILLIGRAM, QD
  6. AMLODIPINE [Concomitant]
     Active Substance: AMLODIPINE BESYLATE
     Indication: Bone marrow transplant
     Dosage: 2.5 MG, QD
  7. AMLODIPINE [Concomitant]
     Active Substance: AMLODIPINE BESYLATE
     Indication: Lymphoproliferative disorder
  8. COTRIMOXAZOLE [Concomitant]
     Active Substance: SULFAMETHOXAZOLE\TRIMETHOPRIM
     Indication: Bone marrow transplant
     Dosage: 80 MG, 2 TIMES PER WEEK
  9. COTRIMOXAZOLE [Concomitant]
     Active Substance: SULFAMETHOXAZOLE\TRIMETHOPRIM
     Indication: Lymphoproliferative disorder
     Dosage: 800/160 MG, THREE TIMES PER WEEK
  10. COTRIMOXAZOLE [Concomitant]
     Active Substance: SULFAMETHOXAZOLE\TRIMETHOPRIM
     Indication: Prophylaxis
  11. CALCIUM CARBONATE [Concomitant]
     Active Substance: CALCIUM CARBONATE
     Indication: Bone marrow transplant
     Dosage: 500 MG, QD
  12. CALCIUM CARBONATE [Concomitant]
     Active Substance: CALCIUM CARBONATE
     Indication: Lymphoproliferative disorder
  13. CALCIUM CARBONATE [Concomitant]
     Active Substance: CALCIUM CARBONATE
     Indication: Supplementation therapy
  14. ACYCLOVIR [Concomitant]
     Active Substance: ACYCLOVIR
     Indication: Bone marrow transplant
     Dosage: 200 MG, TID
  15. ACYCLOVIR [Concomitant]
     Active Substance: ACYCLOVIR
     Indication: Lymphoproliferative disorder
  16. SIROLIMUS [Concomitant]
     Active Substance: SIROLIMUS
     Indication: Bone marrow transplant
     Dosage: 3.5 MG, QD
  17. SIROLIMUS [Concomitant]
     Active Substance: SIROLIMUS
     Dosage: 2 MG, BID
  18. SIROLIMUS [Concomitant]
     Active Substance: SIROLIMUS
     Dosage: 0.5 MILLIGRAM, QD
  19. PREDNISONE [Concomitant]
     Active Substance: PREDNISONE
     Indication: Bone marrow transplant
     Dosage: 6.25 MG, QD
  20. DALBAVANCIN [Concomitant]
     Active Substance: DALBAVANCIN
     Indication: Bone marrow transplant
     Dosage: 450 MG, EVERY 20 DAYS
  21. CHOLECALCIFEROL [Concomitant]
     Active Substance: CHOLECALCIFEROL
     Indication: Supplementation therapy
     Dosage: 6 GTT, QD
  22. CHOLECALCIFEROL [Concomitant]
     Active Substance: CHOLECALCIFEROL
     Dosage: 10 GTT DROPS, QD
  23. ASCORBIC ACID [Concomitant]
     Active Substance: ASCORBIC ACID
     Indication: Supplementation therapy
     Dosage: 10 UNK, UNK
  24. ASCORBIC ACID [Concomitant]
     Active Substance: ASCORBIC ACID
     Dosage: 60 MILLIGRAM, QD
  25. OMEPRAZOLE [Concomitant]
     Active Substance: OMEPRAZOLE
     Indication: Product used for unknown indication
     Dosage: 20 MG, QD
  26. FOLIN [FOLIC ACID] [Concomitant]
     Indication: Product used for unknown indication
     Dosage: 5 MG, QD
  27. POTASSIUM [Concomitant]
     Active Substance: POTASSIUM
     Indication: Product used for unknown indication
     Dosage: 1 G, QD
  28. FLUCONAZOLE [Concomitant]
     Active Substance: FLUCONAZOLE
     Indication: Bone marrow transplant
     Dosage: 100 MG, QD
  29. UNSPECIFIED INGREDIENT [Concomitant]
     Active Substance: UNSPECIFIED INGREDIENT
     Indication: Hypertriglyceridaemia
     Dosage: 145 MG, QD
     Dates: start: 20190710
  30. PREDNISONE [Concomitant]
     Active Substance: PREDNISONE
     Indication: Product used for unknown indication
     Dosage: 2.5 MILLIGRAM, QD
  31. BACTRIM DS [Concomitant]
     Active Substance: SULFAMETHOXAZOLE\TRIMETHOPRIM
     Indication: Prophylaxis against transplant rejection
     Dosage: 800/160 MILLIGRAM, 3 TIMES A WEEK
  32. FISH OIL [Concomitant]
     Active Substance: FISH OIL
     Indication: Hypercholesterolaemia
     Dosage: 1000 MILLIGRAM, QD
  33. FISH OIL [Concomitant]
     Active Substance: FISH OIL
     Indication: Hepatic steatosis
  34. AMOXICILLIN [Concomitant]
     Active Substance: AMOXICILLIN
     Indication: Prophylaxis against transplant rejection
     Dosage: 500 MILLIGRAM, QD
  35. CORTISONE ACETATE [Concomitant]
     Active Substance: CORTISONE ACETATE
     Indication: Arterial insufficiency
     Dosage: 18.75 MILLIGRAM, QD

REACTIONS (17)
  - Blood triglycerides increased [Unknown]
  - Metabolic disorder [Unknown]
  - Glycosylated haemoglobin increased [Unknown]
  - Diabetes mellitus [Unknown]
  - Hepatic steatosis [Unknown]
  - Osteomyelitis acute [Recovered/Resolved]
  - Sepsis [Recovered/Resolved]
  - Myelitis [Recovered/Resolved]
  - Neutralising antibodies positive [Unknown]
  - Ear infection [Recovered/Resolved]
  - Condition aggravated [Unknown]
  - Drug ineffective [Unknown]
  - Drug specific antibody present [Unknown]
  - Hyperphagia [Recovering/Resolving]
  - Insulin resistance [Unknown]
  - Irritability [Recovering/Resolving]
  - Aggression [Unknown]

NARRATIVE: CASE EVENT DATE: 20170811
